FAERS Safety Report 4748891-9 (Version None)
Quarter: 2005Q3

REPORT INFORMATION
  Report Type: 
  Country: None (occurrence: None)
  Receive Date: 20050812
  Receipt Date: 20050517
  Transmission Date: 20060218
  Serious: Yes (Other)
  Sender: FDA-Public Use
  Company Number: 357954

PATIENT
  Age: 47 Year
  Sex: Male
  Weight: 86.2 kg

DRUGS (7)
  1. PEGASYS [Suspect]
     Indication: HEPATITIS C
     Dosage: 180 MCG 1 PER WEEK SUBCUTANEOUS
     Route: 058
     Dates: start: 20030815, end: 20040215
  2. COPEGUS [Suspect]
     Indication: HEPATITIS C
     Dosage: ORAL
     Route: 048
     Dates: start: 20030815, end: 20040215
  3. KLONOPIN [Concomitant]
  4. XANAX [Concomitant]
  5. ANTIRETROVIRALS (ANTIRETROVIRALS) [Concomitant]
  6. INVIRASE [Concomitant]
  7. UNSPECIFIED DRUG (GENERIC UNKNOWN) [Concomitant]

REACTIONS (20)
  - ANOREXIA [None]
  - ANXIETY [None]
  - ASTHENIA [None]
  - CHEST WALL PAIN [None]
  - COUGH [None]
  - CRYING [None]
  - DEPRESSION [None]
  - DISEASE RECURRENCE [None]
  - DIZZINESS [None]
  - DYSPNOEA EXERTIONAL [None]
  - HEADACHE [None]
  - INFLUENZA LIKE ILLNESS [None]
  - INJECTION SITE PAIN [None]
  - MUSCLE ATROPHY [None]
  - NAUSEA [None]
  - PAIN [None]
  - PNEUMONIA BACTERIAL [None]
  - TREMOR [None]
  - VARICOSE VEIN [None]
  - WEIGHT DECREASED [None]
